FAERS Safety Report 15499542 (Version 1)
Quarter: 2018Q4

REPORT INFORMATION
  Report Type: Spontaneous
  Country: US (occurrence: US)
  Receive Date: 20181008
  Receipt Date: 20181008
  Transmission Date: 20190205
  Serious: Yes (Life-Threatening, Hospitalization)
  Sender: FDA-Public Use
  Company Number: None

PATIENT
  Age: 29 Year
  Sex: Female
  Weight: 90 kg

DRUGS (2)
  1. JUNEL FE 1/20 [Suspect]
     Active Substance: ETHINYL ESTRADIOL\NORETHINDRONE ACETATE
     Indication: CONTRACEPTION
     Dosage: ?          OTHER STRENGTH:1/20;QUANTITY:28 TABLET(S);?
     Route: 048
     Dates: start: 20180505, end: 20180912
  2. JUNEL FE 1/20 [Suspect]
     Active Substance: ETHINYL ESTRADIOL\NORETHINDRONE ACETATE
     Indication: HAEMORRHAGE
     Dosage: ?          OTHER STRENGTH:1/20;QUANTITY:28 TABLET(S);?
     Route: 048
     Dates: start: 20180505, end: 20180912

REACTIONS (1)
  - Intracranial venous sinus thrombosis [None]

NARRATIVE: CASE EVENT DATE: 20180928
